FAERS Safety Report 8558979-2 (Version None)
Quarter: 2012Q3

REPORT INFORMATION
  Report Type: 
  Country: None (occurrence: None)
  Receive Date: 20120802
  Receipt Date: 20120724
  Transmission Date: 20120928
  Serious: Yes (Other)
  Sender: FDA-Public Use
  Company Number: CA-BRISTOL-MYERS SQUIBB COMPANY-16516585

PATIENT
  Age: 61 Year
  Sex: Female

DRUGS (10)
  1. TEMAZEPAM [Concomitant]
  2. OXYCODONE HCL [Concomitant]
  3. ZINC SULFATE [Concomitant]
  4. METHOTREXATE [Concomitant]
  5. VITAMIN D [Concomitant]
  6. PREDNISONE [Concomitant]
  7. FLAXSEED OIL [Concomitant]
  8. MILK THISTLE [Concomitant]
  9. ORENCIA [Suspect]
     Indication: RHEUMATOID ARTHRITIS
     Dosage: INF:6, LAST INF: 19-JUL-12
     Route: 042
     Dates: start: 20120326
  10. SALMON OIL [Concomitant]
     Dosage: WILS SALMON OIL

REACTIONS (4)
  - NAUSEA [None]
  - CARDIOMEGALY [None]
  - VOMITING [None]
  - DYSPEPSIA [None]
